FAERS Safety Report 16952339 (Version 2)
Quarter: 2019Q4

REPORT INFORMATION
  Report Type: Spontaneous
  Country: JP (occurrence: JP)
  Receive Date: 20191023
  Receipt Date: 20191120
  Transmission Date: 20200122
  Serious: Yes (Hospitalization, Other)
  Sender: FDA-Public Use
  Company Number: JP-009507513-1910JPN001978J

PATIENT
  Age: 56 Year
  Sex: Female

DRUGS (2)
  1. CORTRIL [Concomitant]
     Active Substance: HYDROCORTISONE
     Dosage: UNK
     Route: 048
  2. KEYTRUDA [Suspect]
     Active Substance: PEMBROLIZUMAB
     Indication: ADRENAL GLAND CANCER
     Dosage: 200 MILLIGRAM, Q3W
     Route: 041
     Dates: start: 201906

REACTIONS (3)
  - Adrenal insufficiency [Unknown]
  - Hypopituitarism [Unknown]
  - Physical deconditioning [Unknown]
